FAERS Safety Report 8424465-3 (Version None)
Quarter: 2012Q2

REPORT INFORMATION
  Report Type: 
  Country: None (occurrence: None)
  Receive Date: 20120610
  Receipt Date: 20120528
  Transmission Date: 20120825
  Serious: Yes (Other)
  Sender: FDA-Public Use
  Company Number: BR-BRISTOL-MYERS SQUIBB COMPANY-16649378

PATIENT
  Age: 33 Year
  Sex: Female

DRUGS (4)
  1. ZIDOVUDINE [Suspect]
     Indication: HIV INFECTION
     Dates: start: 19970501
  2. EFAVIRENZ [Suspect]
     Indication: HIV INFECTION
     Dates: start: 20021101
  3. DIDANOSINE [Suspect]
     Indication: HIV INFECTION
     Dates: start: 19970501
  4. LAMIVUDINE [Suspect]
     Indication: HIV INFECTION
     Dates: start: 19990101

REACTIONS (10)
  - HEADACHE [None]
  - BASAL CELL CARCINOMA [None]
  - AMOEBIASIS [None]
  - DRUG INTOLERANCE [None]
  - URINARY TRACT INFECTION [None]
  - NAUSEA [None]
  - WEIGHT DECREASED [None]
  - LIPODYSTROPHY ACQUIRED [None]
  - CONFUSIONAL STATE [None]
  - DEPRESSION [None]
